FAERS Safety Report 12617866 (Version 1)
Quarter: 2016Q3

REPORT INFORMATION
  Report Type: Spontaneous
  Country: US (occurrence: None)
  Receive Date: 20160802
  Receipt Date: 20160802
  Transmission Date: 20161109
  Serious: No
  Sender: FDA-Public Use
  Company Number: None

PATIENT

DRUGS (2)
  1. AZITHROMYCIN ANHYDROUS. [Concomitant]
     Active Substance: AZITHROMYCIN ANHYDROUS
     Dosage: DROPS
     Route: 047
  2. AZOPT [Suspect]
     Active Substance: BRINZOLAMIDE
     Dosage: SUSPENSION
     Route: 047

REACTIONS (2)
  - Drug prescribing error [None]
  - Intercepted product selection error [None]
